FAERS Safety Report 9430543 (Version 1)
Quarter: 2013Q3

REPORT INFORMATION
  Report Type: Spontaneous
  Country: ES (occurrence: None)
  Receive Date: 20130726
  Receipt Date: 20130726
  Transmission Date: 20140515
  Serious: Yes (Other)
  Sender: FDA-Public Use
  Company Number: E2B_7225539

PATIENT
  Age: 45 Year
  Sex: Female

DRUGS (2)
  1. EUTIROX [Suspect]
     Indication: PRIMARY HYPOTHYROIDISM
     Route: 048
     Dates: start: 20130617
  2. LEVOTHYROXINE SODIUM [Concomitant]

REACTIONS (5)
  - Myalgia [None]
  - Arthralgia [None]
  - Alcoholism [None]
  - Menorrhagia [None]
  - Palpitations [None]
